FAERS Safety Report 23778608 (Version 1)
Quarter: 2024Q2

REPORT INFORMATION
  Report Type: Spontaneous
  Country: US (occurrence: US)
  Receive Date: 20240424
  Receipt Date: 20240424
  Transmission Date: 20240715
  Serious: Yes (Hospitalization, Other)
  Sender: FDA-Public Use
  Company Number: US-BAUSCH-BL-2024-006278

PATIENT

DRUGS (13)
  1. PYRIDOSTIGMINE BROMIDE [Suspect]
     Active Substance: PYRIDOSTIGMINE BROMIDE
     Indication: Blood pressure abnormal
     Dosage: 2 IN THE MORNING, 1 AND HALF A TABLET IN THE AFTERNOON AND EVENING BY MOUTH
     Route: 048
  2. PYRIDOSTIGMINE BROMIDE [Suspect]
     Active Substance: PYRIDOSTIGMINE BROMIDE
     Indication: Product use in unapproved indication
  3. VYNDAMAX [Suspect]
     Active Substance: TAFAMIDIS
     Indication: Cardiac amyloidosis
     Dosage: 61MG CAPSULE ONE A DAY BY MOUTH
     Route: 048
  4. WARFARIN [Suspect]
     Active Substance: WARFARIN
     Indication: Thrombocytopenia
     Dosage: 5 MG 6 DAYS A WEEK AND 7.5MG ON FRIDAY; TABLETS, BY MOUTH
     Route: 048
  5. CARBIDOPA\LEVODOPA [Concomitant]
     Active Substance: CARBIDOPA\LEVODOPA
     Indication: Parkinsonism
     Dosage: 50/200MG TABLET THREE TIMES A DAY BY MOUTH
     Route: 048
  6. CLONAZEPAM [Concomitant]
     Active Substance: CLONAZEPAM
     Indication: Sleep terror
     Dosage: 0.5MG, WHICH IS HALF A TABLET, ONCE EVERY EVENING BY MOUTH
     Route: 048
  7. DONEPEZIL [Concomitant]
     Active Substance: DONEPEZIL
     Indication: Memory impairment
     Dosage: 10MG TABLET ONCE IN THE EVENING BY MOUTH
     Route: 048
  8. ESOMEPRAZOLE [Concomitant]
     Active Substance: ESOMEPRAZOLE
     Indication: Gastrooesophageal reflux disease
     Dosage: 40MG CAPSULE ONCE IN THE MORNING BY MOUTH
     Route: 048
  9. LEVOTHYROXINE [Concomitant]
     Active Substance: LEVOTHYROXINE\LEVOTHYROXINE SODIUM
     Indication: Thyroid disorder
     Dosage: 88MCG TABLET ONE IN THE MORNING BY MOUTH
     Route: 048
  10. MIDODRINE [Concomitant]
     Active Substance: MIDODRINE
     Indication: Blood pressure decreased
     Dosage: 10MG TABLET THREE TIMES A DAY (MORNING, AFTERNOON,?EVENING) BY MOUTH
     Route: 048
  11. POTASSIUM CHLORIDE [Concomitant]
     Active Substance: POTASSIUM CHLORIDE
     Indication: Prophylaxis
     Dosage: 10MEQ TABLET ONCE IN THE MORNING BY MOUTH
     Route: 048
  12. VITAMIN D3 [Concomitant]
     Active Substance: CHOLECALCIFEROL
     Indication: Vitamin D decreased
     Dosage: 125MCG CAPSULE ONCE THE MORNING BY MOUTH
     Route: 048
  13. MINERALS\VITAMINS [Concomitant]
     Active Substance: MINERALS\VITAMINS
     Indication: Prophylaxis
     Dosage: CENTRUM FOR SENIORS ONE TABLET BY MOUTH
     Route: 048

REACTIONS (4)
  - Cerebrovascular accident [Unknown]
  - International normalised ratio decreased [Unknown]
  - Circumstance or information capable of leading to medication error [Unknown]
  - Product use in unapproved indication [Unknown]

NARRATIVE: CASE EVENT DATE: 20240401
